FAERS Safety Report 8349636-6 (Version None)
Quarter: 2012Q2

REPORT INFORMATION
  Report Type: 
  Country: None (occurrence: None)
  Receive Date: 20120510
  Receipt Date: 20120430
  Transmission Date: 20120825
  Serious: Yes (Hospitalization, Other)
  Sender: FDA-Public Use
  Company Number: FR-PFIZER INC-2011007633

PATIENT
  Age: 68 Year
  Sex: Female

DRUGS (11)
  1. LASIX [Concomitant]
     Dosage: UNK
  2. SINGULAIR [Concomitant]
     Dosage: UNK
  3. CITALOPRAM HYDROBROMIDE [Suspect]
     Indication: PRODUCT USED FOR UNKNOWN INDICATION
     Dosage: 20 MG DAILY
     Route: 048
  4. DIGOXIN [Suspect]
     Indication: ATRIAL FIBRILLATION
     Dosage: UNK
     Route: 048
     Dates: start: 20091101, end: 20091210
  5. AUGMENTIN [Concomitant]
     Dosage: UNK
  6. ISOPTIN [Concomitant]
     Dosage: UNK
  7. ARIXTRA [Concomitant]
     Dosage: UNK
  8. PULMICORT [Concomitant]
     Dosage: UNK
  9. CORDARONE [Suspect]
     Indication: ATRIAL FIBRILLATION
     Dosage: 200 MG, UNK
     Route: 048
     Dates: start: 20091101, end: 20091210
  10. XYZAL [Concomitant]
     Dosage: UNK
  11. IMOVANE [Concomitant]
     Dosage: UNK

REACTIONS (5)
  - MULTIPLE MYELOMA [None]
  - ELECTROCARDIOGRAM QT PROLONGED [None]
  - BRADYCARDIA [None]
  - VENTRICULAR TACHYCARDIA [None]
  - TORSADE DE POINTES [None]
